FAERS Safety Report 5526594-0 (Version None)
Quarter: 2007Q4

REPORT INFORMATION
  Report Type: 
  Country: None (occurrence: None)
  Receive Date: 20071127
  Receipt Date: 20071113
  Transmission Date: 20080405
  Serious: Yes (Hospitalization)
  Sender: FDA-Public Use
  Company Number: US-AMGEN-US240253

PATIENT
  Sex: Female

DRUGS (7)
  1. PANITUMUMAB [Suspect]
     Indication: COLORECTAL CANCER
     Route: 042
     Dates: start: 20070726
  2. PANITUMUMAB [Suspect]
     Route: 042
     Dates: start: 20070814, end: 20070814
  3. IRINOTECAN HCL [Suspect]
     Route: 065
  4. LEUCOVORIN CALCIUM [Suspect]
     Route: 065
  5. FLUOROURACIL [Suspect]
     Route: 065
  6. SYNTHROID [Concomitant]
     Route: 065
  7. WELLBUTRIN [Concomitant]

REACTIONS (1)
  - ASTHENIA [None]
